FAERS Safety Report 8536494-X (Version None)
Quarter: 2012Q3

REPORT INFORMATION
  Report Type: 
  Country: None (occurrence: None)
  Receive Date: 20120718
  Receipt Date: 20120718
  Transmission Date: 20120928
  Serious: Yes (Life-Threatening, Hospitalization)
  Sender: FDA-Public Use
  Company Number: None

PATIENT
  Age: 29 Year
  Sex: Male
  Weight: 158.759 kg

DRUGS (2)
  1. CYMBALTA [Suspect]
     Indication: DEPRESSION
     Dosage: 60MG 3 CAPS DAILY 1X DAILY PO
     Route: 048
     Dates: start: 20070101, end: 20120614
  2. CYMBALTA [Suspect]
     Indication: ANXIETY
     Dosage: 60MG 3 CAPS DAILY 1X DAILY PO
     Route: 048
     Dates: start: 20070101, end: 20120614

REACTIONS (2)
  - SEROTONIN SYNDROME [None]
  - GRAND MAL CONVULSION [None]
